FAERS Safety Report 14926621 (Version 2)
Quarter: 2018Q2

REPORT INFORMATION
  Report Type: Spontaneous
  Country: FI (occurrence: FI)
  Receive Date: 20180523
  Receipt Date: 20180607
  Transmission Date: 20180711
  Serious: Yes (Hospitalization, Other)
  Sender: FDA-Public Use
  Company Number: FI-ASTELLAS-2018US023457

PATIENT
  Age: 34 Year
  Sex: Male

DRUGS (3)
  1. PROGRAF [Suspect]
     Active Substance: TACROLIMUS\TACROLIMUS ANHYDROUS
     Indication: INTESTINAL TRANSPLANT
     Dosage: UNK UNK, TWICE DAILY
     Route: 048
  2. METHYLPREDNISOLONE. [Concomitant]
     Active Substance: METHYLPREDNISOLONE
     Indication: INTESTINAL TRANSPLANT
     Route: 065
  3. MYCOPHENOLIC ACID. [Concomitant]
     Active Substance: MYCOPHENOLIC ACID
     Indication: INTESTINAL TRANSPLANT
     Route: 065

REACTIONS (8)
  - Volvulus [Unknown]
  - Cytomegalovirus gastroenteritis [Recovered/Resolved]
  - Product use in unapproved indication [Unknown]
  - Off label use [Unknown]
  - Gastroenteritis norovirus [Not Recovered/Not Resolved]
  - Transplant rejection [Recovered/Resolved]
  - Intestine transplant rejection [Recovered/Resolved]
  - Volvulus [Recovered/Resolved]
